FAERS Safety Report 13511419 (Version 1)
Quarter: 2017Q2

REPORT INFORMATION
  Report Type: Spontaneous
  Country: US (occurrence: US)
  Receive Date: 20170503
  Receipt Date: 20170503
  Transmission Date: 20170830
  Serious: Yes (Hospitalization)
  Sender: FDA-Public Use
  Company Number: US-ASTRAZENECA-2017SE44544

PATIENT
  Age: 68 Year
  Sex: Male
  Weight: 88.5 kg

DRUGS (2)
  1. BRILINTA [Suspect]
     Active Substance: TICAGRELOR
     Indication: PERIPHERAL ARTERIAL OCCLUSIVE DISEASE
     Route: 048
     Dates: start: 2013
  2. ASPIRIN. [Concomitant]
     Active Substance: ASPIRIN
     Indication: ANTICOAGULANT THERAPY
     Route: 048

REACTIONS (4)
  - Chest pain [Recovering/Resolving]
  - Off label use [Unknown]
  - Product use in unapproved indication [Unknown]
  - Deafness neurosensory [Not Recovered/Not Resolved]

NARRATIVE: CASE EVENT DATE: 201702
